FAERS Safety Report 7164499-2 (Version None)
Quarter: 2010Q4

REPORT INFORMATION
  Report Type: 
  Country: None (occurrence: None)
  Receive Date: 20101215
  Receipt Date: 20101105
  Transmission Date: 20110411
  Serious: Yes (Death, Other)
  Sender: FDA-Public Use
  Company Number: US-BAXTER-2010BH003125

PATIENT
  Age: 76 Year
  Sex: Male
  Weight: 111 kg

DRUGS (8)
  1. HEPARIN SODIUM INJECTION [Suspect]
     Indication: CORONARY ARTERY BYPASS
     Route: 042
     Dates: start: 20071207, end: 20071207
  2. HEPARIN SODIUM INJECTION [Suspect]
     Route: 042
     Dates: start: 20071207, end: 20071207
  3. HEPARIN SODIUM INJECTION [Suspect]
     Route: 058
     Dates: start: 20071208, end: 20071212
  4. GLIPIZIDE [Concomitant]
     Indication: PRODUCT USED FOR UNKNOWN INDICATION
     Route: 048
  5. ATENOLOL [Concomitant]
     Indication: PRODUCT USED FOR UNKNOWN INDICATION
     Route: 048
  6. ASPIRIN [Concomitant]
     Indication: PRODUCT USED FOR UNKNOWN INDICATION
     Route: 048
  7. NITROTAB [Concomitant]
     Indication: CHEST PAIN
     Route: 060
  8. QUININE SULFATE [Concomitant]
     Indication: MUSCLE SPASMS
     Route: 048

REACTIONS (9)
  - ATELECTASIS [None]
  - ATRIAL FLUTTER [None]
  - HAEMORRHAGE INTRACRANIAL [None]
  - HEPARIN-INDUCED THROMBOCYTOPENIA [None]
  - HYPOAESTHESIA [None]
  - HYPOTENSION [None]
  - MUSCULAR WEAKNESS [None]
  - PARAESTHESIA [None]
  - PLEURAL EFFUSION [None]
